FAERS Safety Report 10257431 (Version 2)
Quarter: 2014Q2

REPORT INFORMATION
  Report Type: Spontaneous
  Country: DE (occurrence: DE)
  Receive Date: 20140625
  Receipt Date: 20140625
  Transmission Date: 20141212
  Serious: Yes (Life-Threatening, Hospitalization, Other)
  Sender: FDA-Public Use
  Company Number: DE-JNJFOC-20140417794

PATIENT
  Age: 81 Year
  Sex: Male

DRUGS (31)
  1. DOXORUBICIN [Suspect]
     Indication: PLASMA CELL MYELOMA
     Route: 042
     Dates: start: 201309, end: 201309
  2. DOXORUBICIN [Suspect]
     Indication: PLASMA CELL MYELOMA
     Route: 042
     Dates: start: 201308, end: 201309
  3. DOXORUBICIN [Suspect]
     Indication: PLASMA CELL MYELOMA
     Route: 042
     Dates: start: 20130705, end: 20130807
  4. DOXORUBICIN [Suspect]
     Indication: PLASMA CELL MYELOMA
     Route: 042
     Dates: start: 201309, end: 20130924
  5. BENDAMUSTINE HYDROCHLORIDE [Suspect]
     Indication: PLASMA CELL MYELOMA
     Dosage: GIVEN ON DAY 1 AND DAY 3 THREE TIMES
     Route: 042
     Dates: start: 20130514, end: 20130515
  6. BENDAMUSTINE HYDROCHLORIDE [Suspect]
     Indication: PLASMA CELL MYELOMA
     Route: 042
     Dates: start: 20130612
  7. DEXAMETHASONE [Suspect]
     Indication: PLASMA CELL MYELOMA
     Route: 065
     Dates: start: 201309, end: 20130924
  8. DEXAMETHASONE [Suspect]
     Indication: PLASMA CELL MYELOMA
     Route: 065
     Dates: start: 20130209, end: 20130301
  9. DEXAMETHASONE [Suspect]
     Indication: PLASMA CELL MYELOMA
     Route: 065
     Dates: start: 20130312, end: 20130320
  10. DEXAMETHASONE [Suspect]
     Indication: PLASMA CELL MYELOMA
     Route: 065
     Dates: start: 20130321, end: 20130513
  11. DEXAMETHASONE [Suspect]
     Indication: PLASMA CELL MYELOMA
     Route: 065
     Dates: start: 20130514, end: 20130515
  12. DEXAMETHASONE [Suspect]
     Indication: PLASMA CELL MYELOMA
     Route: 065
     Dates: start: 20130705, end: 20130807
  13. DEXAMETHASONE [Suspect]
     Indication: PLASMA CELL MYELOMA
     Route: 065
     Dates: start: 20131007, end: 20131014
  14. DEXAMETHASONE [Suspect]
     Indication: PLASMA CELL MYELOMA
     Route: 065
     Dates: start: 20121213, end: 20130131
  15. DEXAMETHASONE [Suspect]
     Indication: PLASMA CELL MYELOMA
     Route: 065
     Dates: start: 20130612
  16. DEXAMETHASONE [Suspect]
     Indication: PLASMA CELL MYELOMA
     Route: 065
     Dates: start: 201308, end: 201308
  17. DEXAMETHASONE [Suspect]
     Indication: PLASMA CELL MYELOMA
     Route: 065
     Dates: start: 201309, end: 201309
  18. GRANISETRON [Suspect]
     Indication: PLASMA CELL MYELOMA
     Route: 065
     Dates: start: 20130612
  19. GRANISETRON [Suspect]
     Indication: PLASMA CELL MYELOMA
     Route: 065
     Dates: start: 20130514, end: 20130515
  20. REVLIMID [Suspect]
     Indication: PLASMA CELL MYELOMA
     Route: 065
     Dates: start: 20130705, end: 20130807
  21. REVLIMID [Suspect]
     Indication: PLASMA CELL MYELOMA
     Route: 065
     Dates: start: 20130312, end: 20130320
  22. REVLIMID [Suspect]
     Indication: PLASMA CELL MYELOMA
     Route: 065
     Dates: start: 20130209, end: 20130301
  23. REVLIMID [Suspect]
     Indication: PLASMA CELL MYELOMA
     Route: 065
     Dates: start: 201309, end: 201309
  24. REVLIMID [Suspect]
     Indication: PLASMA CELL MYELOMA
     Route: 065
     Dates: start: 201309, end: 20130924
  25. REVLIMID [Suspect]
     Indication: PLASMA CELL MYELOMA
     Route: 065
     Dates: start: 20130321, end: 20130513
  26. REVLIMID [Suspect]
     Indication: PLASMA CELL MYELOMA
     Route: 065
     Dates: start: 201308, end: 201309
  27. VELCADE [Suspect]
     Indication: PLASMA CELL MYELOMA
     Route: 065
     Dates: start: 20121213, end: 20130131
  28. VELCADE [Suspect]
     Indication: PLASMA CELL MYELOMA
     Dosage: DAY 1, 4, 8
     Route: 065
     Dates: start: 20130705, end: 20130807
  29. VELCADE [Suspect]
     Indication: PLASMA CELL MYELOMA
     Route: 065
     Dates: start: 201309, end: 20130924
  30. VELCADE [Suspect]
     Indication: PLASMA CELL MYELOMA
     Route: 065
     Dates: start: 201309, end: 201309
  31. VELCADE [Suspect]
     Indication: PLASMA CELL MYELOMA
     Route: 065
     Dates: start: 201308, end: 201309

REACTIONS (8)
  - Anaemia [Recovered/Resolved]
  - Vertigo [Recovered/Resolved]
  - Petechiae [Recovered/Resolved]
  - Cough [Recovered/Resolved]
  - Pancytopenia [Recovered/Resolved]
  - Thrombocytopenia [Recovered/Resolved]
  - Fatigue [Recovered/Resolved]
  - Urinary tract infection [Recovered/Resolved]
